FAERS Safety Report 12793622 (Version 1)
Quarter: 2016Q3

REPORT INFORMATION
  Report Type: Spontaneous
  Country: US (occurrence: US)
  Receive Date: 20160929
  Receipt Date: 20160929
  Transmission Date: 20161109
  Serious: No
  Sender: FDA-Public Use
  Company Number: None

PATIENT
  Age: 73 Year
  Sex: Female
  Weight: 7.26 kg

DRUGS (10)
  1. COQ10 [Concomitant]
     Active Substance: UBIDECARENONE
  2. VITAMIN B12 [Concomitant]
     Active Substance: CYANOCOBALAMIN
  3. METFORMIN [Concomitant]
     Active Substance: METFORMIN HYDROCHLORIDE
  4. VITAMIN C [Concomitant]
     Active Substance: ASCORBIC ACID
  5. HYDRALAZINE 10MG [Suspect]
     Active Substance: HYDRALAZINE HYDROCHLORIDE
     Indication: HYPERTENSION
     Dosage: 1 PILL 3 TIMES A DAY MOUTH
     Route: 048
     Dates: start: 20160810, end: 20160818
  6. SIMVASTATIN. [Concomitant]
     Active Substance: SIMVASTATIN
  7. TELMISARTAN/HCTZ [Concomitant]
     Active Substance: HYDROCHLOROTHIAZIDE\TELMISARTAN
  8. CALCIUM [Concomitant]
     Active Substance: CALCIUM
  9. MULTIVITAMIN [Concomitant]
     Active Substance: VITAMINS
  10. BYSTOLIC [Concomitant]
     Active Substance: NEBIVOLOL HYDROCHLORIDE

REACTIONS (4)
  - Arthralgia [None]
  - Myalgia [None]
  - Lymphadenopathy [None]
  - Pain in extremity [None]

NARRATIVE: CASE EVENT DATE: 20160816
